FAERS Safety Report 4488294-8 (Version None)
Quarter: 2004Q4

REPORT INFORMATION
  Report Type: 
  Country: None (occurrence: None)
  Receive Date: 20041026
  Receipt Date: 20041012
  Transmission Date: 20050328
  Serious: Yes (Hospitalization)
  Sender: FDA-Public Use
  Company Number: 220043K04USA

PATIENT
  Age: 14 Year
  Sex: Female

DRUGS (3)
  1. SAIZEN [Suspect]
     Indication: GROWTH HORMONE DEFICIENCY
     Dosage: 4.5 MG
     Dates: start: 20040910, end: 20040915
  2. STEROIDS [Concomitant]
  3. THYROID MEDICATION [Concomitant]

REACTIONS (16)
  - ABDOMINAL PAIN [None]
  - ABDOMINAL PAIN UPPER [None]
  - ABNORMAL BEHAVIOUR [None]
  - BLOOD PRESSURE DECREASED [None]
  - CRYING [None]
  - FEAR [None]
  - FEELING ABNORMAL [None]
  - GASTROENTERITIS [None]
  - HEADACHE [None]
  - HEART RATE DECREASED [None]
  - INFLUENZA [None]
  - IRRITABILITY [None]
  - NERVOUSNESS [None]
  - SLUGGISHNESS [None]
  - STRESS SYMPTOMS [None]
  - VOMITING [None]
